FAERS Safety Report 5270440-X (Version None)
Quarter: 2007Q1

REPORT INFORMATION
  Report Type: 
  Country: None (occurrence: None)
  Receive Date: 20070314
  Receipt Date: 20070226
  Transmission Date: 20070707
  Serious: Yes (Disabling)
  Sender: FDA-Public Use
  Company Number: 230027M06FRA

PATIENT
  Age: 42 Year
  Sex: Male
  Weight: 70 kg

DRUGS (5)
  1. REBIF [Suspect]
     Indication: MULTIPLE SCLEROSIS
     Dosage: 44 MCG, 3IN 1 WEEKS, SUBCUTANEOUS
     Route: 058
     Dates: start: 20010101
  2. ACETAMINOPHEN [Concomitant]
  3. PREDNISOLONE SODIUM SULFOBENZOATE [Concomitant]
  4. SOLUMDEDROL (METHYLPREDNISOLONE SODIUM SUCCINATE) [Concomitant]
  5. CORTANCYL (PREDNISONE /00044701/) [Concomitant]

REACTIONS (7)
  - ABDOMINAL WALL INFECTION [None]
  - CALCINOSIS [None]
  - GRANULOMA [None]
  - GRANULOMA SKIN [None]
  - INJECTION SITE ABSCESS [None]
  - POST PROCEDURAL COMPLICATION [None]
  - SUPERINFECTION [None]
